FAERS Safety Report 4715858-6 (Version None)
Quarter: 2005Q3

REPORT INFORMATION
  Report Type: 
  Country: None (occurrence: None)
  Receive Date: 20050713
  Receipt Date: 20050708
  Transmission Date: 20060218
  Serious: Yes (Other)
  Sender: FDA-Public Use
  Company Number: 215588

PATIENT
  Age: 36 Year
  Sex: Female

DRUGS (7)
  1. XOLAIR [Suspect]
     Indication: ASTHMA
     Dosage: 375 MG, Q2W, SUBCUTANEOUS
     Route: 058
     Dates: start: 20050101, end: 20050510
  2. PULMICORT INHALER (BUDESONIDE) [Concomitant]
  3. ADAVIR (SALMETEROL XINAFOATE, FLUTICASONE PROPIONATE) [Concomitant]
  4. RHINOCORT [Concomitant]
  5. BECONASE (BECLOMETHASONE DIPROPIONATE) [Concomitant]
  6. ALBUTEROL INHALER (ALBUTEROL, ALBUEROL SULFATE) [Concomitant]
  7. PRENATAL VITAMINS NOS (MINERALS NOS, MULTIVITAMINS NOS) [Concomitant]

REACTIONS (4)
  - ABORTION [None]
  - DRUG EXPOSURE DURING PREGNANCY [None]
  - INTRA-UTERINE DEATH [None]
  - TWIN PREGNANCY [None]
